FAERS Safety Report 25825152 (Version 1)
Quarter: 2025Q3

REPORT INFORMATION
  Report Type: Report from Study
  Country: JP (occurrence: JP)
  Receive Date: 20250919
  Receipt Date: 20250919
  Transmission Date: 20251021
  Serious: Yes (Hospitalization, Other)
  Sender: GILEAD
  Company Number: JP-CMIC-GS-JP-569-6813-00011-00002

PATIENT
  Age: 52 Year
  Sex: Female
  Weight: 55.4 kg

DRUGS (17)
  1. SACITUZUMAB GOVITECAN-HZIY [Suspect]
     Active Substance: SACITUZUMAB GOVITECAN-HZIY
     Indication: Triple negative breast cancer
     Route: 041
     Dates: start: 20250424, end: 20250529
  2. SACITUZUMAB GOVITECAN-HZIY [Suspect]
     Active Substance: SACITUZUMAB GOVITECAN-HZIY
     Route: 041
     Dates: start: 20250612, end: 20250821
  3. PEGFILGRASTIM [Concomitant]
     Active Substance: PEGFILGRASTIM
     Indication: Prophylaxis
     Dates: start: 20250619, end: 20250821
  4. ALOXI [Concomitant]
     Active Substance: PALONOSETRON HYDROCHLORIDE
     Indication: Prophylaxis
     Route: 042
     Dates: start: 20250424, end: 20250821
  5. DEXAMETHASONE SODIUM PHOSPHATE [Concomitant]
     Active Substance: DEXAMETHASONE SODIUM PHOSPHATE
     Indication: Prophylaxis
     Route: 042
     Dates: start: 20250424, end: 20250821
  6. POLARAMINE [Concomitant]
     Active Substance: DEXCHLORPHENIRAMINE MALEATE
     Indication: Prophylaxis
     Route: 042
     Dates: start: 20250424, end: 20250821
  7. FAMOTIDINE [Concomitant]
     Active Substance: FAMOTIDINE
     Indication: Prophylaxis
     Route: 042
     Dates: start: 20250424, end: 20250821
  8. FAMOTIDINE [Concomitant]
     Active Substance: FAMOTIDINE
     Route: 048
     Dates: start: 20250906
  9. FLURBIPROFEN AXETIL [Concomitant]
     Active Substance: FLURBIPROFEN AXETIL
     Indication: Pain
     Route: 042
     Dates: start: 20250910
  10. OXIFAST [OXYCODONE HYDROCHLORIDE] [Concomitant]
     Indication: Pain
     Route: 042
     Dates: start: 20250910, end: 20250910
  11. ACETAMINOPHEN [Concomitant]
     Active Substance: ACETAMINOPHEN
     Indication: Pain
     Route: 042
     Dates: start: 20250910
  12. LEVOTHYROXINE SODIUM [Concomitant]
     Active Substance: LEVOTHYROXINE SODIUM
     Indication: Disease complication
     Route: 048
  13. AMLODIPINE [Concomitant]
     Active Substance: AMLODIPINE BESYLATE
     Indication: Disease complication
     Dates: start: 20240725
  14. MIROGABALIN BESYLATE [Concomitant]
     Active Substance: MIROGABALIN BESYLATE
     Indication: Disease complication
     Route: 048
  15. LOXOPROFEN SODIUM DIHYDRATE [Concomitant]
     Active Substance: LOXOPROFEN SODIUM DIHYDRATE
     Indication: Pain
     Route: 048
     Dates: start: 20250906
  16. OXYCODONE HYDROCHLORIDE [Concomitant]
     Active Substance: OXYCODONE HYDROCHLORIDE
     Indication: Pain
     Route: 048
     Dates: start: 20250906, end: 20250908
  17. PROCHLORPERAZINE MALEATE [Concomitant]
     Active Substance: PROCHLORPERAZINE MALEATE
     Indication: Prophylaxis
     Dates: start: 20250906, end: 20250908

REACTIONS (4)
  - Triple negative breast cancer [Unknown]
  - Brain neoplasm [Unknown]
  - Vomiting [Not Recovered/Not Resolved]
  - Off label use [Recovered/Resolved]

NARRATIVE: CASE EVENT DATE: 20250424
